FAERS Safety Report 17566707 (Version 1)
Quarter: 2020Q1

REPORT INFORMATION
  Report Type: Spontaneous
  Country: US (occurrence: US)
  Receive Date: 20200320
  Receipt Date: 20200320
  Transmission Date: 20200409
  Serious: No
  Sender: FDA-Public Use
  Company Number: US-JACOBUS PHARMACEUTICAL COMPANY, INC.-2081825

PATIENT
  Age: 66 Year
  Weight: 60 kg

DRUGS (5)
  1. CHLOROMIDE [Concomitant]
  2. XELJANZ [Concomitant]
     Active Substance: TOFACITINIB CITRATE
     Route: 048
     Dates: start: 201907
  3. CYCLOSPORINE. [Concomitant]
     Active Substance: CYCLOSPORINE
  4. PREDNISONE. [Concomitant]
     Active Substance: PREDNISONE
  5. DAPSONE. [Suspect]
     Active Substance: DAPSONE
     Indication: ERYTHEMA MULTIFORME

REACTIONS (1)
  - Drug ineffective [Unknown]

NARRATIVE: CASE EVENT DATE: 20200313
